FAERS Safety Report 11872681 (Version 2)
Quarter: 2016Q1

REPORT INFORMATION
  Report Type: Spontaneous
  Country: US (occurrence: US)
  Receive Date: 20151228
  Receipt Date: 20160111
  Transmission Date: 20160526
  Serious: Yes (Hospitalization, Other)
  Sender: FDA-Public Use
  Company Number: US-FRI-1000081882

PATIENT
  Age: 67 Year
  Sex: Male

DRUGS (23)
  1. BETADINE [Concomitant]
     Active Substance: POVIDONE-IODINE
  2. ZOSYN [Concomitant]
     Active Substance: PIPERACILLIN SODIUM\TAZOBACTAM SODIUM
     Dates: end: 20130102
  3. FLUORESCEIN SODIUM. [Concomitant]
     Active Substance: FLUORESCEIN SODIUM
  4. PROPARACAINE HYDOCHLORIDE [Concomitant]
  5. AMIODARONE [Concomitant]
     Active Substance: AMIODARONE
     Route: 048
     Dates: start: 20130102
  6. FISH OIL [Concomitant]
     Active Substance: FISH OIL
  7. LIVALO [Concomitant]
     Active Substance: PITAVASTATIN CALCIUM
  8. ROCEPHIN [Concomitant]
     Active Substance: CEFTRIAXONE SODIUM
  9. BENOXINATE. [Concomitant]
     Active Substance: BENOXINATE
  10. BYSTOLIC [Suspect]
     Active Substance: NEBIVOLOL HYDROCHLORIDE
  11. AMLODIPINE [Concomitant]
     Active Substance: AMLODIPINE BESYLATE
  12. CIPRO [Concomitant]
     Active Substance: CIPROFLOXACIN HYDROCHLORIDE
  13. COZAAR [Concomitant]
     Active Substance: LOSARTAN POTASSIUM
  14. FLUORESCEIN [Concomitant]
     Active Substance: FLUORESCEIN
  15. PF-04523655 [Suspect]
     Active Substance: INVESTIGATIONAL PRODUCT
     Indication: DIABETIC RETINAL OEDEMA
     Dates: start: 20120821, end: 20121024
  16. AMIODARONE [Concomitant]
     Active Substance: AMIODARONE
     Route: 042
     Dates: end: 20130102
  17. GLIPIZIDE. [Concomitant]
     Active Substance: GLIPIZIDE
  18. HYDRALAZINE [Concomitant]
     Active Substance: HYDRALAZINE HYDROCHLORIDE
  19. DOPAMINE [Concomitant]
     Active Substance: DOPAMINE\DOPAMINE HYDROCHLORIDE
  20. ERGOCALCIFEROL. [Concomitant]
     Active Substance: ERGOCALCIFEROL
  21. OFLOXACIN. [Concomitant]
     Active Substance: OFLOXACIN
  22. TROPICAMIDE. [Concomitant]
     Active Substance: TROPICAMIDE
  23. PHENYLEPHRINE HYDROCHLORIDE. [Concomitant]
     Active Substance: PHENYLEPHRINE HYDROCHLORIDE

REACTIONS (17)
  - Cholecystitis [Recovered/Resolved]
  - Sepsis [Not Recovered/Not Resolved]
  - Renal failure [Recovered/Resolved with Sequelae]
  - Septic shock [Unknown]
  - Hypotension [Unknown]
  - Cellulitis [Unknown]
  - Hepatic enzyme increased [Unknown]
  - Cholelithiasis [Recovered/Resolved]
  - Macular oedema [Unknown]
  - Pancreatitis acute [Recovered/Resolved]
  - Renal injury [Unknown]
  - Hypertension [Unknown]
  - Vitreous disorder [Unknown]
  - Gallbladder enlargement [Unknown]
  - Bradycardia [Recovered/Resolved]
  - Atrial fibrillation [Recovered/Resolved]
  - Hyperkalaemia [Unknown]

NARRATIVE: CASE EVENT DATE: 20121227
